FAERS Safety Report 13591262 (Version 1)
Quarter: 2017Q2

REPORT INFORMATION
  Report Type: Spontaneous
  Country: US (occurrence: US)
  Receive Date: 20170530
  Receipt Date: 20170530
  Transmission Date: 20170830
  Serious: Yes (Hospitalization)
  Sender: FDA-Public Use
  Company Number: None

PATIENT
  Age: 62 Year
  Sex: Female

DRUGS (2)
  1. TEMOZOLOMIDE 20MG OTHER [Suspect]
     Active Substance: TEMOZOLOMIDE
     Indication: BRAIN NEOPLASM
     Route: 048
     Dates: start: 20161028, end: 20170508
  2. TEMOZOLOMIDE 250MG OTHER [Suspect]
     Active Substance: TEMOZOLOMIDE
     Indication: METASTATIC NEOPLASM
     Route: 048
     Dates: start: 20161028, end: 20170508

REACTIONS (3)
  - Therapy cessation [None]
  - Hospitalisation [None]
  - Fall [None]

NARRATIVE: CASE EVENT DATE: 20170526
